FAERS Safety Report 8347265-1 (Version None)
Quarter: 2012Q2

REPORT INFORMATION
  Report Type: 
  Country: None (occurrence: None)
  Receive Date: 20120509
  Receipt Date: 20120424
  Transmission Date: 20120825
  Serious: Yes (Other)
  Sender: FDA-Public Use
  Company Number: GB-PFIZER INC-2012112110

PATIENT
  Sex: Male

DRUGS (1)
  1. EPIPEN [Suspect]
     Dosage: UNK
     Dates: start: 20111027

REACTIONS (4)
  - INJECTION SITE DISCOMFORT [None]
  - EXPIRED DRUG ADMINISTERED [None]
  - DISCOMFORT [None]
  - ACCIDENTAL EXPOSURE [None]
